FAERS Safety Report 9675673 (Version 2)
Quarter: 2014Q1

REPORT INFORMATION
  Report Type: Spontaneous
  Country: US (occurrence: US)
  Receive Date: 20131107
  Receipt Date: 20140224
  Transmission Date: 20141002
  Serious: No
  Sender: FDA-Public Use
  Company Number: US-009507513-1311USA000567

PATIENT
  Age: 90 Year
  Sex: Female
  Weight: 57.6 kg

DRUGS (5)
  1. OXYTROL FOR WOMEN [Suspect]
     Indication: HYPERTONIC BLADDER
     Dosage: UNK UNK, Q4D
     Route: 062
     Dates: start: 20131020, end: 20131023
  2. OXYTROL FOR WOMEN [Suspect]
     Indication: INCONTINENCE
  3. ASPIRIN [Concomitant]
     Indication: ARTHRITIS
     Dosage: UNK, UNKNOWN
  4. ASPIRIN [Concomitant]
     Indication: CARDIAC DISORDER
  5. LEVOTHYROXINE SODIUM [Concomitant]
     Indication: THYROID DISORDER
     Dosage: .05 MG, UNKNOWN

REACTIONS (1)
  - Back pain [Recovered/Resolved]
